FAERS Safety Report 13491434 (Version 2)
Quarter: 2017Q4

REPORT INFORMATION
  Report Type: Spontaneous
  Country: JP (occurrence: JP)
  Receive Date: 20170427
  Receipt Date: 20171002
  Transmission Date: 20180320
  Serious: Yes (Disabling, Other)
  Sender: FDA-Public Use
  Company Number: JP-PFIZER INC-2017182187

PATIENT
  Age: 69 Year
  Sex: Male
  Weight: 65 kg

DRUGS (18)
  1. ZOSYN [Suspect]
     Active Substance: PIPERACILLIN SODIUM\TAZOBACTAM SODIUM
     Indication: MEDIASTINITIS
  2. VANCOMYCIN HYDROCHLORIDE. [Concomitant]
     Active Substance: VANCOMYCIN HYDROCHLORIDE
     Indication: MEDIASTINITIS
  3. LEVOFLOXACIN HEMIHYDRATE [Concomitant]
     Active Substance: LEVOFLOXACIN
     Indication: SUTURE RUPTURE
     Dosage: 500 MG, DAILY
     Route: 041
     Dates: start: 20161012, end: 20161017
  4. ZYVOX [Concomitant]
     Active Substance: LINEZOLID
     Indication: SUTURE RUPTURE
     Dosage: 600 MG, DAILY
     Route: 041
     Dates: start: 20161014, end: 20161017
  5. LIXIANA [Concomitant]
     Active Substance: EDOXABAN TOSYLATE
     Indication: PULMONARY INFARCTION
     Dosage: 60 MG, DAILY
     Dates: start: 20160918, end: 20161018
  6. ZOSYN [Suspect]
     Active Substance: PIPERACILLIN SODIUM\TAZOBACTAM SODIUM
     Indication: INFECTIOUS PLEURAL EFFUSION
     Dosage: 4.5 G, 4X/DAY
     Route: 041
     Dates: start: 20160929, end: 20161017
  7. VANCOMYCIN HYDROCHLORIDE. [Concomitant]
     Active Substance: VANCOMYCIN HYDROCHLORIDE
     Indication: SUTURE RUPTURE
     Dosage: 2.25 G, DAILY
     Route: 041
     Dates: start: 20160926, end: 20161014
  8. FUNGUARD [Concomitant]
     Active Substance: MICAFUNGIN SODIUM
     Indication: MEDIASTINITIS
  9. LANSOPRAZOLE OD [Concomitant]
     Active Substance: LANSOPRAZOLE
     Dosage: 15 MG, DAILY
     Dates: start: 20160918, end: 20161018
  10. ZOSYN [Suspect]
     Active Substance: PIPERACILLIN SODIUM\TAZOBACTAM SODIUM
     Indication: SEPTIC SHOCK
  11. ACELIO [Suspect]
     Active Substance: ACETAMINOPHEN
     Indication: INFECTIOUS PLEURAL EFFUSION
     Dosage: 4000 MG, DAILY (1000 TO 4000 MG/DAY)
     Route: 041
     Dates: start: 20160919, end: 20161019
  12. LEVOFLOXACIN HEMIHYDRATE [Concomitant]
     Active Substance: LEVOFLOXACIN
     Indication: MEDIASTINITIS
  13. FUNGUARD [Concomitant]
     Active Substance: MICAFUNGIN SODIUM
     Indication: SUTURE RUPTURE
     Dosage: 150 MG, DAILY
     Route: 041
     Dates: start: 20161013, end: 20161017
  14. ZYVOX [Concomitant]
     Active Substance: LINEZOLID
     Indication: MEDIASTINITIS
  15. ACELIO [Suspect]
     Active Substance: ACETAMINOPHEN
     Indication: SEPTIC SHOCK
  16. ACELIO [Suspect]
     Active Substance: ACETAMINOPHEN
     Indication: PYREXIA
  17. ZOSYN [Suspect]
     Active Substance: PIPERACILLIN SODIUM\TAZOBACTAM SODIUM
     Indication: SUTURE RUPTURE
  18. ROPION [Concomitant]
     Active Substance: FLURBIPROFEN AXETIL
     Indication: PYREXIA
     Dosage: 100 MG, DAILY
     Route: 041
     Dates: start: 20160927, end: 20161017

REACTIONS (4)
  - Drug hypersensitivity [Recovering/Resolving]
  - Drug eruption [Recovered/Resolved]
  - Pyrexia [Recovered/Resolved]
  - Acute kidney injury [Recovered/Resolved with Sequelae]

NARRATIVE: CASE EVENT DATE: 20161011
